FAERS Safety Report 4421197-3 (Version None)
Quarter: 2004Q3

REPORT INFORMATION
  Report Type: 
  Country: None (occurrence: None)
  Receive Date: 20040707
  Receipt Date: 20040305
  Transmission Date: 20050211
  Serious: No
  Sender: FDA-Public Use
  Company Number: SU-2004-002201

PATIENT
  Age: 50 Year
  Sex: Female
  Weight: 61.2356 kg

DRUGS (1)
  1. BENICAR HCT [Suspect]
     Indication: HYPERTENSION
     Dosage: 10.625 MG QD PO
     Route: 048
     Dates: start: 20040218

REACTIONS (2)
  - FEMALE ORGASMIC DISORDER [None]
  - GENITAL PRURITUS FEMALE [None]
